FAERS Safety Report 6290657-5 (Version None)
Quarter: 2009Q3

REPORT INFORMATION
  Report Type: 
  Country: None (occurrence: None)
  Receive Date: 20090728
  Receipt Date: 20090728
  Transmission Date: 20100115
  Serious: Yes (Other)
  Sender: FDA-Public Use
  Company Number: None

PATIENT
  Age: 49 Year
  Sex: Female
  Weight: 81.6475 kg

DRUGS (2)
  1. AVELOX [Suspect]
     Indication: BRONCHITIS
     Dosage: 400MG TABLETS 1 PER DAY PO
     Route: 048
     Dates: start: 20090723, end: 20090725
  2. AVELOX [Suspect]
     Indication: SINUSITIS
     Dosage: 400MG TABLETS 1 PER DAY PO
     Route: 048
     Dates: start: 20090723, end: 20090725

REACTIONS (13)
  - ABDOMINAL DISTENSION [None]
  - ASTHENIA [None]
  - CHEST DISCOMFORT [None]
  - DIARRHOEA [None]
  - FATIGUE [None]
  - MIDDLE INSOMNIA [None]
  - NAUSEA [None]
  - NIGHTMARE [None]
  - OLIGURIA [None]
  - OROPHARYNGEAL PAIN [None]
  - PRURITUS [None]
  - PYREXIA [None]
  - RASH MACULAR [None]
